FAERS Safety Report 16446294 (Version 1)
Quarter: 2019Q2

REPORT INFORMATION
  Report Type: Spontaneous
  Country: JP (occurrence: JP)
  Receive Date: 20190618
  Receipt Date: 20190618
  Transmission Date: 20190711
  Serious: Yes (Other)
  Sender: FDA-Public Use
  Company Number: JP-ASTRAZENECA-2016SF00811

PATIENT
  Age: 74 Year
  Sex: Female

DRUGS (2)
  1. BYDUREON [Suspect]
     Active Substance: EXENATIDE
     Route: 065
  2. BYETTA [Suspect]
     Active Substance: EXENATIDE
     Dosage: DOSE UNKNOWN
     Route: 058

REACTIONS (11)
  - Hypoglycaemia [Unknown]
  - Physical deconditioning [Unknown]
  - Glycosylated haemoglobin increased [Unknown]
  - Nausea [Unknown]
  - Blood glucose increased [Unknown]
  - Intestinal obstruction [Unknown]
  - Blood triglycerides abnormal [Unknown]
  - Polyp [Unknown]
  - Back pain [Unknown]
  - Urine analysis abnormal [Unknown]
  - Albumin urine present [Unknown]
